FAERS Safety Report 9501930 (Version 2)
Quarter: 2013Q3

REPORT INFORMATION
  Report Type: Report from Study
  Country: GR (occurrence: GR)
  Receive Date: 20130905
  Receipt Date: 20130919
  Transmission Date: 20140515
  Serious: Yes (Hospitalization)
  Sender: FDA-Public Use
  Company Number: GR-AMGEN-GRCCT2013062188

PATIENT
  Age: 61 Year
  Sex: Female
  Weight: 58 kg

DRUGS (7)
  1. PANITUMUMAB [Suspect]
     Indication: GASTROOESOPHAGEAL CANCER
     Dosage: 6 MG/KG, UNK
     Route: 042
     Dates: start: 20130218, end: 20130819
  2. PANITUMUMAB [Suspect]
     Route: 042
  3. PANITUMUMAB [Suspect]
     Route: 042
  4. DOCETAXEL [Concomitant]
     Indication: GASTROOESOPHAGEAL CANCER
     Dosage: 72 MG, UNK
     Route: 042
     Dates: start: 20130218
  5. FLUOROURACIL [Concomitant]
     Indication: GASTROOESOPHAGEAL CANCER
     Dosage: 4120 MG, UNK
     Route: 042
     Dates: start: 20130218
  6. LEUCOVORIN [Concomitant]
     Indication: GASTROOESOPHAGEAL CANCER
     Dosage: 720 MG, UNK
     Route: 042
     Dates: start: 20130218
  7. CISPLATIN [Concomitant]
     Indication: GASTROOESOPHAGEAL CANCER
     Dosage: 72 MG, UNK
     Route: 042
     Dates: start: 20130218

REACTIONS (3)
  - Dehydration [Recovered/Resolved]
  - Diarrhoea [Recovered/Resolved with Sequelae]
  - Fatigue [Recovering/Resolving]
